FAERS Safety Report 5431370-3 (Version None)
Quarter: 2007Q3

REPORT INFORMATION
  Report Type: 
  Country: None (occurrence: None)
  Receive Date: 20070830
  Receipt Date: 20070510
  Transmission Date: 20080115
  Serious: No
  Sender: FDA-Public Use
  Company Number: A0650831A

PATIENT
  Age: 18 Year
  Sex: Male

DRUGS (4)
  1. WELLBUTRIN XL [Suspect]
     Indication: DEPRESSION
     Dosage: 150MG PER DAY
     Route: 048
  2. REMICADE [Concomitant]
  3. UNSPECIFIED MEDICATION [Concomitant]
  4. CELEBREX [Concomitant]

REACTIONS (2)
  - ARTHRALGIA [None]
  - BURSITIS [None]
